FAERS Safety Report 5815034-X (Version None)
Quarter: 2008Q3

REPORT INFORMATION
  Report Type: 
  Country: None (occurrence: None)
  Receive Date: 20080718
  Receipt Date: 20080711
  Transmission Date: 20090109
  Serious: Yes (Hospitalization)
  Sender: FDA-Public Use
  Company Number: B0528741A

PATIENT

DRUGS (2)
  1. MALARONE [Suspect]
     Indication: MALARIA PROPHYLAXIS
     Route: 065
  2. WARFARIN SODIUM [Suspect]
     Route: 065

REACTIONS (2)
  - BLOOD URINE PRESENT [None]
  - DRUG INTERACTION [None]
